FAERS Safety Report 23315856 (Version 2)
Quarter: 2024Q1

REPORT INFORMATION
  Report Type: Report from Study
  Country: CN (occurrence: CN)
  Receive Date: 20231219
  Receipt Date: 20240117
  Transmission Date: 20240410
  Serious: No
  Sender: FDA-Public Use
  Company Number: CN-PFIZER INC-PV202300203049

PATIENT
  Age: 74 Year
  Sex: Male
  Weight: 75 kg

DRUGS (9)
  1. NIRMATRELVIR\RITONAVIR [Suspect]
     Active Substance: NIRMATRELVIR\RITONAVIR
     Indication: COVID-19
     Dosage: [NIRMATRELVIR 300MG]/[RITONAVIR 100MG], 1X/DAY
     Route: 048
     Dates: start: 20220505, end: 20220510
  2. NIRMATRELVIR\RITONAVIR [Suspect]
     Active Substance: NIRMATRELVIR\RITONAVIR
     Dosage: [NIRMATRELVIR 300MG]/[RITONAVIR 100MG], 2X/DAY
     Route: 048
     Dates: start: 20220515, end: 20220522
  3. CLOZAPINE [Concomitant]
     Active Substance: CLOZAPINE
     Indication: Mental disorder
     Dosage: UNK
     Dates: start: 20220505, end: 20220505
  4. AMISULPRIDE [Concomitant]
     Active Substance: AMISULPRIDE
     Indication: Mental disorder
     Dosage: UNK
     Dates: start: 20220505, end: 20220505
  5. TRIHEXYPHENIDYL HYDROCHLORIDE [Suspect]
     Active Substance: TRIHEXYPHENIDYL HYDROCHLORIDE
     Indication: Mental disorder
     Dosage: UNK
     Dates: start: 20220505, end: 20220505
  6. ESTAZOLAM [Concomitant]
     Active Substance: ESTAZOLAM
     Indication: Mental disorder
     Dosage: UNK
     Dates: start: 20220505, end: 20220505
  7. ENOXAPARIN SODIUM [Concomitant]
     Active Substance: ENOXAPARIN SODIUM
     Indication: Anticoagulant therapy
     Dosage: UNK
     Route: 058
     Dates: start: 20220505, end: 20220505
  8. INTACTED PROTEIN ENTERAL NUTRITION [Concomitant]
     Indication: Nutritional supplementation
     Dosage: POWDER
     Route: 048
     Dates: start: 20220512, end: 20220520
  9. THYMALFASIN [Concomitant]
     Active Substance: THYMALFASIN
     Indication: Immune enhancement therapy
     Dosage: UNK
     Route: 058
     Dates: start: 20220512, end: 20220525

REACTIONS (1)
  - Overdose [Unknown]

NARRATIVE: CASE EVENT DATE: 20220101
